FAERS Safety Report 7906782-6 (Version None)
Quarter: 2011Q4

REPORT INFORMATION
  Report Type: 
  Country: None (occurrence: None)
  Receive Date: 20111110
  Receipt Date: 20111102
  Transmission Date: 20120403
  Serious: Yes (Other)
  Sender: FDA-Public Use
  Company Number: JP-JNJFOC-20101001437

PATIENT
  Age: 33 Year
  Sex: Female

DRUGS (5)
  1. RITODRINE HYDROCHLORIDE [Interacting]
     Indication: ILL-DEFINED DISORDER
     Route: 065
  2. SODIUM CHLORIDE [Interacting]
     Indication: LOCAL ANAESTHESIA
     Route: 008
  3. RISPERDAL [Suspect]
     Indication: ANXIETY
     Dosage: AS NEEDED
     Route: 048
  4. MAGNESIUM SULFATE [Interacting]
     Indication: ILL-DEFINED DISORDER
     Route: 065
  5. LIDOCAINE [Interacting]
     Indication: LOCAL ANAESTHESIA
     Route: 008

REACTIONS (9)
  - MATERNAL EXPOSURE DURING PREGNANCY [None]
  - DRUG INTERACTION [None]
  - SWEAT GLAND DISORDER [None]
  - INJECTION SITE PAIN [None]
  - PYREXIA [None]
  - INFECTION [None]
  - INJECTION SITE WARMTH [None]
  - NEUROLEPTIC MALIGNANT SYNDROME [None]
  - TACHYCARDIA [None]
